FAERS Safety Report 15810921 (Version 3)
Quarter: 2019Q3

REPORT INFORMATION
  Report Type: Report from Study
  Country: US (occurrence: US)
  Receive Date: 20190111
  Receipt Date: 20190815
  Transmission Date: 20191004
  Serious: Yes (Hospitalization, Other)
  Sender: FDA-Public Use
  Company Number: PHEH2019US000660

PATIENT
  Sex: Female

DRUGS (1)
  1. PROMACTA [Suspect]
     Active Substance: ELTROMBOPAG OLAMINE
     Indication: PRODUCT USED FOR UNKNOWN INDICATION
     Route: 065

REACTIONS (10)
  - Contusion [Unknown]
  - Oral mucosal blistering [Unknown]
  - Injury [Unknown]
  - Hypersensitivity [Not Recovered/Not Resolved]
  - Fatigue [Unknown]
  - Mouth haemorrhage [Unknown]
  - Rash [Unknown]
  - Haemorrhage [Unknown]
  - Platelet count decreased [Unknown]
  - Platelet count abnormal [Unknown]
